FAERS Safety Report 7285890-X (Version None)
Quarter: 2011Q1

REPORT INFORMATION
  Report Type: 
  Country: None (occurrence: None)
  Receive Date: 20110210
  Receipt Date: 20110207
  Transmission Date: 20110831
  Serious: Yes (Other)
  Sender: FDA-Public Use
  Company Number: GB-PFIZER INC-2010071620

PATIENT
  Age: 51 Year
  Sex: Male

DRUGS (2)
  1. SUNITINIB MALATE [Suspect]
     Indication: RENAL CELL CARCINOMA
     Dosage: 50 MG, 1X/DAY FOR 28 DAYS IN 6-WEEK CYCLES
     Dates: start: 20060301, end: 20080201
  2. ZOLEDRONATE [Suspect]

REACTIONS (3)
  - OSTEONECROSIS OF JAW [None]
  - STOMATITIS [None]
  - SKIN EXFOLIATION [None]
